FAERS Safety Report 14149657 (Version 1)
Quarter: 2017Q4

REPORT INFORMATION
  Report Type: Spontaneous
  Country: US (occurrence: US)
  Receive Date: 20171101
  Receipt Date: 20171101
  Transmission Date: 20180321
  Serious: No
  Sender: FDA-Public Use
  Company Number: US-BAYER-2017-194044

PATIENT
  Sex: Male

DRUGS (1)
  1. LEVITRA [Suspect]
     Active Substance: VARDENAFIL HYDROCHLORIDE TRIHYDRATE
     Indication: ERECTILE DYSFUNCTION
     Dosage: 20 MG, UNK
     Route: 048

REACTIONS (3)
  - Drug ineffective [None]
  - Intentional product use issue [None]
  - Expired product administered [None]
